FAERS Safety Report 4579115-3 (Version None)
Quarter: 2005Q1

REPORT INFORMATION
  Report Type: 
  Country: None (occurrence: None)
  Receive Date: 20050119
  Receipt Date: 20040908
  Transmission Date: 20050727
  Serious: Yes (Hospitalization)
  Sender: FDA-Public Use
  Company Number: A03200403097

PATIENT
  Age: 62 Year
  Sex: Female
  Weight: 113.3993 kg

DRUGS (8)
  1. PLAVIX [Suspect]
     Indication: CORONARY ARTERIAL STENT INSERTION
     Dosage: 75 MG QD - ORAL
     Route: 048
     Dates: start: 20040401
  2. ACETYLSALICYLIC ACID SRT [Concomitant]
  3. INSULIN [Concomitant]
  4. METROPROLOL SUCCINATE [Concomitant]
  5. POTASSIUM CHLORIDE [Concomitant]
  6. LOSARTAN - HCTZ [Concomitant]
  7. ATORVASTATIN CALCIUM [Concomitant]
  8. ACIXIMAB [Concomitant]

REACTIONS (2)
  - CATHETER SITE HAEMORRHAGE [None]
  - HAEMATEMESIS [None]
